FAERS Safety Report 14868939 (Version 1)
Quarter: 2018Q2

REPORT INFORMATION
  Report Type: Spontaneous
  Country: US (occurrence: US)
  Receive Date: 20180509
  Receipt Date: 20180509
  Transmission Date: 20180711
  Serious: No
  Sender: FDA-Public Use
  Company Number: US-009507513-1804USA005403

PATIENT
  Age: 22 Year
  Sex: Female
  Weight: 73.02 kg

DRUGS (1)
  1. NEXPLANON [Suspect]
     Active Substance: ETONOGESTREL
     Indication: CONTRACEPTION
     Dosage: 1 IMPLANT, LEFT ARM EVERY 3 YEARS
     Route: 059
     Dates: start: 20171206

REACTIONS (6)
  - Dizziness [Unknown]
  - Back pain [Unknown]
  - Abdominal pain [Unknown]
  - Peripheral swelling [Unknown]
  - Headache [Unknown]
  - Pain in extremity [Unknown]
